FAERS Safety Report 23649720 (Version 1)
Quarter: 2024Q1

REPORT INFORMATION
  Report Type: Spontaneous
  Country: PT (occurrence: PT)
  Receive Date: 20240319
  Receipt Date: 20240319
  Transmission Date: 20240410
  Serious: Yes (Other)
  Sender: FDA-Public Use
  Company Number: PT-AKCEA THERAPEUTICS, INC.-2024IS002428

PATIENT

DRUGS (2)
  1. TEGSEDI [Suspect]
     Active Substance: INOTERSEN SODIUM
     Indication: Hereditary neuropathic amyloidosis
     Dosage: 284 MILLIGRAM, QW
     Route: 065
     Dates: start: 20141201, end: 20210113
  2. TEGSEDI [Suspect]
     Active Substance: INOTERSEN SODIUM
     Dosage: 284 MILLIGRAM, QW
     Route: 058
     Dates: start: 20141125, end: 20210107

REACTIONS (2)
  - Iridocyclitis [Recovered/Resolved]
  - Erectile dysfunction [Unknown]

NARRATIVE: CASE EVENT DATE: 20210311
